FAERS Safety Report 11223878 (Version 1)
Quarter: 2015Q2

REPORT INFORMATION
  Report Type: Spontaneous
  Country: US (occurrence: None)
  Receive Date: 20150625
  Receipt Date: 20150625
  Transmission Date: 20150821
  Serious: No
  Sender: FDA-Public Use
  Company Number: None

PATIENT
  Age: 54 Year
  Sex: Female

DRUGS (11)
  1. ORENCIA [Suspect]
     Active Substance: ABATACEPT
     Indication: RHEUMATOID ARTHRITIS
     Dosage: 125MG ?QWK?SQ
     Dates: start: 20141223
  2. VITAMIN C [Concomitant]
     Active Substance: ASCORBIC ACID
  3. ESTRING [Concomitant]
     Active Substance: ESTRADIOL
  4. FISH OIL [Concomitant]
     Active Substance: FISH OIL
  5. METHOREXATE MONONESSA [Concomitant]
  6. CALCIUM [Concomitant]
     Active Substance: CALCIUM
  7. AZITHROMYCIN [Concomitant]
     Active Substance: AZITHROMYCIN ANHYDROUS
  8. ACYCLOVIR. [Concomitant]
     Active Substance: ACYCLOVIR
  9. FLUCONAZOLE. [Concomitant]
     Active Substance: FLUCONAZOLE
  10. D [Concomitant]
  11. NASONEX [Concomitant]
     Active Substance: MOMETASONE FUROATE

REACTIONS (1)
  - Drug dose omission [None]
